FAERS Safety Report 5035211-8 (Version None)
Quarter: 2006Q2

REPORT INFORMATION
  Report Type: 
  Country: None (occurrence: None)
  Receive Date: 20060522
  Receipt Date: 20060425
  Transmission Date: 20061013
  Serious: Yes (Other)
  Sender: FDA-Public Use
  Company Number: US-JNJFOC-20060100782

PATIENT
  Age: 36 Year
  Sex: Male
  Weight: 86.1834 kg

DRUGS (7)
  1. RISPERDAL CONSTA [Suspect]
     Indication: SCHIZOPHRENIA
     Dosage: SEE IMAGE
     Route: 030
     Dates: start: 20051228, end: 20060201
  2. RISPERDAL CONSTA [Suspect]
     Indication: SCHIZOPHRENIA
     Dosage: SEE IMAGE
     Route: 030
     Dates: start: 20060310
  3. RISPERDAL [Suspect]
     Indication: SCHIZOPHRENIA
     Dosage: 3 MG, 2 IN 1 DAY, ORAL
     Route: 048
     Dates: start: 20050905
  4. HALDOL [Suspect]
     Indication: SCHIZOPHRENIA
     Dosage: INJECTION
     Route: 042
     Dates: start: 20000101
  5. HALDOL [Suspect]
     Indication: SCHIZOPHRENIA
     Dosage: 4 MG, ORAL
     Route: 048
     Dates: start: 20030101
  6. OLANZAPINE [Suspect]
     Indication: SCHIZOPHRENIA
  7. ZOLOFT [Concomitant]

REACTIONS (17)
  - ANXIETY [None]
  - DELUSION [None]
  - DISTURBANCE IN ATTENTION [None]
  - GASTRIC DISORDER [None]
  - HALLUCINATION, VISUAL [None]
  - INAPPROPRIATE AFFECT [None]
  - INSOMNIA [None]
  - MENTAL DISORDER [None]
  - SOCIAL AVOIDANT BEHAVIOUR [None]
  - SOMNOLENCE [None]
  - STARING [None]
  - SYNCOPE [None]
  - TARDIVE DYSKINESIA [None]
  - TREMOR [None]
  - UPPER RESPIRATORY TRACT INFECTION [None]
  - VOMITING [None]
  - WEIGHT INCREASED [None]
